FAERS Safety Report 5908522-9 (Version None)
Quarter: 2008Q4

REPORT INFORMATION
  Report Type: 
  Country: None (occurrence: None)
  Receive Date: 20081006
  Receipt Date: 20080820
  Transmission Date: 20090506
  Serious: No
  Sender: FDA-Public Use
  Company Number: US-BAYER-200831721NA

PATIENT
  Sex: Female

DRUGS (2)
  1. CLIMARA [Suspect]
     Indication: DRUG USE FOR UNKNOWN INDICATION
     Route: 062
     Dates: start: 20070101, end: 20080801
  2. CLIMARA [Suspect]
     Route: 062
     Dates: start: 20080801

REACTIONS (4)
  - FEELING HOT [None]
  - HOT FLUSH [None]
  - NIGHT SWEATS [None]
  - NO ADVERSE EVENT [None]
